FAERS Safety Report 8372994-3 (Version None)
Quarter: 2012Q2

REPORT INFORMATION
  Report Type: 
  Country: None (occurrence: None)
  Receive Date: 20120521
  Receipt Date: 20120131
  Transmission Date: 20120825
  Serious: No
  Sender: FDA-Public Use
  Company Number: US-ASTRAZENECA-2012SE10329

PATIENT
  Age: 67 Year
  Sex: Male

DRUGS (7)
  1. PRILOSEC OTC [Suspect]
     Route: 048
     Dates: start: 20120131, end: 20120131
  2. CARVEDILOL [Concomitant]
  3. DOXAZOSIN MESYLATE [Concomitant]
  4. ZOLPIDEM [Concomitant]
  5. FLECAINIDE ACETATE [Concomitant]
  6. NEURONTIN [Concomitant]
  7. BENICAR [Concomitant]

REACTIONS (5)
  - INCORRECT DOSE ADMINISTERED [None]
  - INAPPROPRIATE SCHEDULE OF DRUG ADMINISTRATION [None]
  - CONDITION AGGRAVATED [None]
  - DYSPEPSIA [None]
  - NAUSEA [None]
